FAERS Safety Report 17510361 (Version 1)
Quarter: 2020Q1

REPORT INFORMATION
  Report Type: Spontaneous
  Country: US (occurrence: US)
  Receive Date: 20200306
  Receipt Date: 20200306
  Transmission Date: 20200409
  Serious: Yes (Hospitalization, Other)
  Sender: FDA-Public Use
  Company Number: US-ABBVIE-20K-163-3303865-00

PATIENT
  Age: 7 Year
  Sex: Male

DRUGS (4)
  1. CLOBAZAM. [Suspect]
     Active Substance: CLOBAZAM
     Indication: SEIZURE
     Route: 065
  2. LAMOTRIGINE. [Suspect]
     Active Substance: LAMOTRIGINE
     Indication: SEIZURE
     Route: 065
  3. LEVETIRACETAM. [Suspect]
     Active Substance: LEVETIRACETAM
     Indication: SEIZURE
     Route: 065
  4. VALPROATE SALT NOT SPECIFIED [Suspect]
     Active Substance: VALPROATE SODIUM
     Indication: SEIZURE
     Route: 065

REACTIONS (6)
  - Status epilepticus [Unknown]
  - Ataxia [Unknown]
  - Dysphagia [Unknown]
  - Cognitive disorder [Unknown]
  - Seizure [Unknown]
  - Somnolence [Unknown]
